FAERS Safety Report 6078103-8 (Version None)
Quarter: 2009Q1

REPORT INFORMATION
  Report Type: 
  Country: None (occurrence: None)
  Receive Date: 20090213
  Receipt Date: 20090203
  Transmission Date: 20090719
  Serious: Yes (Hospitalization)
  Sender: FDA-Public Use
  Company Number: DE-PFIZER INC-2007009285

PATIENT

DRUGS (13)
  1. SUNITINIB MALATE [Suspect]
     Indication: METASTATIC RENAL CELL CARCINOMA
     Dosage: 50 MG, 1X/DAY
     Route: 048
     Dates: start: 20051215
  2. ALLOPURINOL [Concomitant]
     Dates: start: 20050101
  3. CODEINE [Concomitant]
     Dosage: UNK
     Dates: start: 20051101
  4. IBUPROFEN [Concomitant]
     Dates: start: 20051201, end: 20060101
  5. NIFEDIPINE [Concomitant]
     Dosage: SINGLE DOSE
     Dates: start: 20060111, end: 20060111
  6. COTRIM [Concomitant]
     Dates: start: 20060206, end: 20060210
  7. RAMIPRIL [Concomitant]
     Dosage: 2.5 MG
     Dates: start: 20060123, end: 20060305
  8. RAMIPRIL [Concomitant]
     Dosage: 5 MG
     Dates: start: 20060306
  9. DIPYRONE TAB [Concomitant]
     Dates: start: 20060620, end: 20060620
  10. METOCLOPRAMIDE [Concomitant]
     Dosage: UNK
     Dates: start: 20060901
  11. UREA [Concomitant]
     Dates: start: 20060907
  12. VITAMIN B-12 [Concomitant]
     Dates: start: 20070101
  13. PANTOPRAZOL [Concomitant]
     Dates: start: 20070101

REACTIONS (3)
  - ABDOMINAL PAIN [None]
  - CHOLELITHIASIS [None]
  - DUODENAL ULCER [None]
